FAERS Safety Report 17893489 (Version 1)
Quarter: 2020Q2

REPORT INFORMATION
  Report Type: Spontaneous
  Country: VN (occurrence: VN)
  Receive Date: 20200615
  Receipt Date: 20200615
  Transmission Date: 20200714
  Serious: Yes (Other)
  Sender: FDA-Public Use
  Company Number: VN-ROCHE-2620790

PATIENT
  Age: 30 Year
  Sex: Male

DRUGS (6)
  1. PROGRAF [Suspect]
     Active Substance: TACROLIMUS
     Indication: BK VIRUS INFECTION
     Route: 065
  2. CELLCEPT [Suspect]
     Active Substance: MYCOPHENOLATE MOFETIL\MYCOPHENOLATE MOFETIL HYDROCHLORIDE
     Indication: BK VIRUS INFECTION
     Dosage: WITH GRADUAL DOSE REDUCTION BY 0.5G/2WEEKS FOLLOWED BY DOSE MAINTENANCE OF 0.5 G/DAY X 4 WEEKS.
     Route: 065
  3. CELLCEPT [Suspect]
     Active Substance: MYCOPHENOLATE MOFETIL\MYCOPHENOLATE MOFETIL HYDROCHLORIDE
     Route: 065
  4. PREDNISOLONE. [Suspect]
     Active Substance: PREDNISOLONE
     Indication: BK VIRUS INFECTION
     Route: 065
  5. MEDROL [Concomitant]
     Active Substance: METHYLPREDNISOLONE
     Indication: BK VIRUS INFECTION
     Dosage: MAINTENANCE
     Route: 065
  6. EVEROLIMUS. [Suspect]
     Active Substance: EVEROLIMUS
     Indication: BK VIRUS INFECTION
     Route: 065

REACTIONS (5)
  - Glomerulonephritis proliferative [Unknown]
  - Intentional product use issue [Unknown]
  - Off label use [Unknown]
  - Blood creatinine increased [Unknown]
  - Proteinuria [Recovering/Resolving]
